FAERS Safety Report 6456561-4 (Version None)
Quarter: 2009Q4

REPORT INFORMATION
  Report Type: 
  Country: None (occurrence: None)
  Receive Date: 20091120
  Receipt Date: 20091109
  Transmission Date: 20100525
  Serious: Yes (Hospitalization)
  Sender: FDA-Public Use
  Company Number: 2009AL007131

PATIENT
  Age: 28 Year
  Sex: Female

DRUGS (3)
  1. SULFATRIM AND SULFATRIM PEDIATRIC SUSPENSION [Suspect]
  2. SODIUM BICARBONATE IN PLASTIC CONTAINER [Concomitant]
  3. IRON [Concomitant]

REACTIONS (6)
  - ASTHENIA [None]
  - CYANOSIS [None]
  - DRUG INEFFECTIVE [None]
  - DYSPNOEA [None]
  - STRESS [None]
  - SULPHAEMOGLOBINAEMIA [None]
